FAERS Safety Report 9004439 (Version 1)
Quarter: 2013Q1

REPORT INFORMATION
  Report Type: Spontaneous
  Country: US (occurrence: None)
  Receive Date: 20130103
  Receipt Date: 20130103
  Transmission Date: 20140127
  Serious: Yes (Other)
  Sender: FDA-Public Use
  Company Number: None

PATIENT
  Age: 46 Year
  Sex: Female
  Weight: 101.61 kg

DRUGS (2)
  1. MIRENA IUD BAYER [Suspect]
     Indication: MENORRHAGIA
     Dosage: 1 IUD EVERY 5 YEARS INTRA-UTERINE
     Dates: start: 20121212, end: 20121227
  2. MIRENA IUD BAYER [Suspect]
     Indication: UTERINE LEIOMYOMA
     Dosage: 1 IUD EVERY 5 YEARS INTRA-UTERINE
     Dates: start: 20121212, end: 20121227

REACTIONS (18)
  - Paraesthesia [None]
  - Paraesthesia [None]
  - Hypoaesthesia [None]
  - Hypoaesthesia [None]
  - Hypoaesthesia [None]
  - Hypoaesthesia [None]
  - Pain in extremity [None]
  - Pain in extremity [None]
  - Peripheral coldness [None]
  - Dry eye [None]
  - Dry mouth [None]
  - Thirst [None]
  - Back pain [None]
  - Abdominal pain [None]
  - Pain [None]
  - Chills [None]
  - Uterine infection [None]
  - Device expulsion [None]
